FAERS Safety Report 5225736-4 (Version None)
Quarter: 2007Q1

REPORT INFORMATION
  Report Type: 
  Country: None (occurrence: None)
  Receive Date: 20070131
  Receipt Date: 20070131
  Transmission Date: 20070707
  Serious: Yes (Other)
  Sender: FDA-Public Use
  Company Number: None

PATIENT
  Age: 48 Year
  Sex: Female

DRUGS (1)
  1. ZOCOR [Suspect]
     Dosage: 20 MG 1 A DAY PO
     Route: 048

REACTIONS (1)
  - MYALGIA [None]
